FAERS Safety Report 8205651 (Version 2)
Quarter: 2012Q4

REPORT INFORMATION
  Report Type: 
  Country: US (occurrence: US)
  Receive Date: 20111028
  Receipt Date: 20120912
  Transmission Date: 20130627
  Serious: No
  Sender: FDA-Public Use
  Company Number: US-ASTRAZENECA-2010SE55611

PATIENT
  Sex: Male

DRUGS (9)
  1. TENORETIC [Suspect]
     Route: 048
  2. TOPROL XL [Concomitant]
     Route: 048
  3. TRILEPTAL [Concomitant]
  4. ZOCOR [Concomitant]
     Route: 048
  5. ACETAMINOPHEN [Concomitant]
     Route: 048
  6. HYDROCHLOROTHIAZIDE [Concomitant]
  7. NORVASC [Concomitant]
     Route: 048
  8. NORVASC [Concomitant]
     Route: 048
  9. ZYRTEC [Concomitant]
     Route: 048

REACTIONS (2)
  - Infection [Unknown]
  - Drug hypersensitivity [Unknown]
